FAERS Safety Report 7608584-7 (Version None)
Quarter: 2011Q3

REPORT INFORMATION
  Report Type: 
  Country: None (occurrence: None)
  Receive Date: 20110714
  Receipt Date: 20110707
  Transmission Date: 20111222
  Serious: Yes (Hospitalization, Other)
  Sender: FDA-Public Use
  Company Number: PHHY2011DE32866

PATIENT
  Sex: Male
  Weight: 35 kg

DRUGS (2)
  1. TIAPRIDE [Suspect]
     Indication: TIC
     Dosage: 50 MG ONCE
     Dates: start: 20110419, end: 20110419
  2. RITALIN [Suspect]
     Indication: ATTENTION DEFICIT/HYPERACTIVITY DISORDER
     Dosage: 15 MG, QD
     Route: 048
     Dates: start: 20060101

REACTIONS (7)
  - PAIN IN EXTREMITY [None]
  - DYSPNOEA [None]
  - PARAESTHESIA [None]
  - FALL [None]
  - MUSCULOSKELETAL STIFFNESS [None]
  - MONOPLEGIA [None]
  - TIC [None]
